FAERS Safety Report 24153522 (Version 1)
Quarter: 2024Q3

REPORT INFORMATION
  Report Type: Report from Study
  Country: BR (occurrence: BR)
  Receive Date: 20240730
  Receipt Date: 20240730
  Transmission Date: 20241016
  Serious: Yes (Other)
  Sender: MYLAN
  Company Number: BR-MYLANLABS-2024M1069984

PATIENT
  Sex: Male
  Weight: 68 kg

DRUGS (2)
  1. XALATAN [Suspect]
     Active Substance: LATANOPROST
     Indication: Glaucoma
     Dosage: 1 GTT DROPS, PM
     Route: 047
     Dates: end: 2017
  2. XALATAN [Suspect]
     Active Substance: LATANOPROST
     Dosage: 1 GTT DROPS, PM
     Route: 047
     Dates: start: 2017

REACTIONS (2)
  - Eye operation [Recovered/Resolved]
  - Product packaging quantity issue [Not Recovered/Not Resolved]

NARRATIVE: CASE EVENT DATE: 20170101
